FAERS Safety Report 5879034-6 (Version None)
Quarter: 2008Q3

REPORT INFORMATION
  Report Type: 
  Country: None (occurrence: None)
  Receive Date: 20080912
  Receipt Date: 20080903
  Transmission Date: 20090109
  Serious: Yes (Other)
  Sender: FDA-Public Use
  Company Number: PHHY2008US19951

PATIENT
  Sex: Female
  Weight: 118 kg

DRUGS (1)
  1. EXJADE [Suspect]
     Dosage: 2000 MG, QD
     Route: 048
     Dates: start: 20080823

REACTIONS (2)
  - CHROMATURIA [None]
  - RENAL PAIN [None]
